FAERS Safety Report 4310115-4 (Version None)
Quarter: 2004Q1

REPORT INFORMATION
  Report Type: 
  Country: None (occurrence: None)
  Receive Date: 20040227
  Receipt Date: 20040106
  Transmission Date: 20041129
  Serious: No
  Sender: FDA-Public Use
  Company Number: FABR-10425

PATIENT
  Age: 38 Year
  Sex: Male
  Weight: 96.8 kg

DRUGS (5)
  1. FABRAZYME [Suspect]
     Indication: FABRY'S DISEASE
     Dosage: 105 MG IV
     Route: 042
     Dates: start: 20031010
  2. ASPIRIN [Concomitant]
  3. MULTI-VITAMINS [Concomitant]
  4. HYDROXYZINE [Concomitant]
  5. TYLENOL (CAPLET) [Concomitant]

REACTIONS (3)
  - EPIGASTRIC DISCOMFORT [None]
  - NAUSEA [None]
  - VOMITING [None]
